FAERS Safety Report 11727256 (Version 1)
Quarter: 2015Q4

REPORT INFORMATION
  Report Type: Spontaneous
  Country: FR (occurrence: FR)
  Receive Date: 20151112
  Receipt Date: 20151112
  Transmission Date: 20160304
  Serious: Yes (Death)
  Sender: FDA-Public Use
  Company Number: FR-INDIVIOR-INDV-084892-2015

PATIENT
  Age: 17 Year
  Sex: Female

DRUGS (1)
  1. SUBUTEX [Suspect]
     Active Substance: BUPRENORPHINE HYDROCHLORIDE
     Indication: PRODUCT USED FOR UNKNOWN INDICATION
     Dosage: ONE HALF TABLET, ONCE
     Route: 065
     Dates: start: 201305, end: 201305

REACTIONS (4)
  - Substance abuse [Recovered/Resolved]
  - Overdose [Fatal]
  - Product preparation error [Recovered/Resolved]
  - Cardiac arrest [Fatal]

NARRATIVE: CASE EVENT DATE: 201305
